FAERS Safety Report 9507180 (Version 1)
Quarter: 2013Q3

REPORT INFORMATION
  Report Type: Spontaneous
  Country: IT (occurrence: IT)
  Receive Date: 20130909
  Receipt Date: 20130909
  Transmission Date: 20140515
  Serious: Yes (Other)
  Sender: FDA-Public Use
  Company Number: IT-ALEXION PHARMACEUTICALS INC.-A201302131

PATIENT
  Age: 5 Year
  Sex: Male
  Weight: 18 kg

DRUGS (7)
  1. SOLIRIS 300MG [Suspect]
     Indication: HAEMOLYTIC URAEMIC SYNDROME
     Dosage: 600 MG,DAYS 1 AND 7 POST TRANSPLANT
     Route: 042
     Dates: start: 201108
  2. SOLIRIS 300MG [Suspect]
     Dosage: 300 MG, Q2W
     Route: 042
  3. SOLIRIS 300MG [Suspect]
     Dosage: 600 MG, Q2W
     Route: 042
  4. THYMOGLOBULIN [Concomitant]
     Dosage: UNK, LOW DOSE
  5. BASILIXIMAB [Concomitant]
  6. CYCLOSPORINE [Concomitant]
  7. MYCOPHENOLATE MOFETIL [Concomitant]

REACTIONS (5)
  - Burkholderia cepacia complex sepsis [Recovered/Resolved]
  - Thrombocytopenia [Recovered/Resolved]
  - Haptoglobin decreased [Recovered/Resolved]
  - Viral infection [Recovered/Resolved]
  - Haemolysis [Recovered/Resolved]
